FAERS Safety Report 4366718-4 (Version None)
Quarter: 2004Q2

REPORT INFORMATION
  Report Type: 
  Country: None (occurrence: None)
  Receive Date: 20040527
  Receipt Date: 20040330
  Transmission Date: 20050107
  Serious: Yes (Hospitalization, Other)
  Sender: FDA-Public Use
  Company Number: 2004S1000333

PATIENT
  Age: 79 Year
  Sex: Female

DRUGS (4)
  1. METOPROLOL TARTRATE [Suspect]
     Indication: HYPERTENSION
     Dosage: 50MG QD, ORAL
     Route: 048
     Dates: start: 20010101, end: 20040203
  2. FENTANYL [Concomitant]
  3. GEMCITABINE HCL [Concomitant]
  4. PROCHLORPERAZINE [Concomitant]

REACTIONS (8)
  - ASTHENIA [None]
  - DYSPNOEA [None]
  - MALNUTRITION [None]
  - NAUSEA [None]
  - OEDEMA PERIPHERAL [None]
  - PLEURAL EFFUSION [None]
  - RASH ERYTHEMATOUS [None]
  - THROMBOSIS [None]
